FAERS Safety Report 20069198 (Version 2)
Quarter: 2022Q2

REPORT INFORMATION
  Report Type: Spontaneous
  Country: PT (occurrence: PT)
  Receive Date: 20211115
  Receipt Date: 20220407
  Transmission Date: 20220720
  Serious: Yes (Life-Threatening, Hospitalization, Other)
  Sender: FDA-Public Use
  Company Number: None

PATIENT
  Age: 22 Year
  Sex: Male

DRUGS (5)
  1. IBUPROFEN [Suspect]
     Active Substance: IBUPROFEN
     Indication: Otitis media acute
     Dosage: UNK
     Route: 048
  2. AMOXICILLIN [Suspect]
     Active Substance: AMOXICILLIN
     Indication: Otitis media acute
  3. RIZATRIPTAN [Suspect]
     Active Substance: RIZATRIPTAN
     Indication: Migraine
     Route: 048
  4. LEVOTHYROXINE [Concomitant]
     Active Substance: LEVOTHYROXINE
     Dosage: DAILY
     Route: 048
  5. METFORMIN [Concomitant]
     Active Substance: METFORMIN HYDROCHLORIDE
     Dosage: DAILY
     Route: 048

REACTIONS (6)
  - Acute kidney injury [Recovered/Resolved]
  - Back pain [Recovered/Resolved]
  - Haematuria [Recovered/Resolved]
  - Oliguria [Recovered/Resolved]
  - Vomiting [Recovered/Resolved]
  - Suprapubic pain [Recovered/Resolved]
